FAERS Safety Report 6694735-8 (Version None)
Quarter: 2010Q2

REPORT INFORMATION
  Report Type: 
  Country: None (occurrence: None)
  Receive Date: 20100423
  Receipt Date: 20100420
  Transmission Date: 20101027
  Serious: Yes (Hospitalization)
  Sender: FDA-Public Use
  Company Number: A0849185A

PATIENT
  Age: 44 Year
  Sex: Female

DRUGS (3)
  1. AVANDIA [Suspect]
     Indication: TYPE 2 DIABETES MELLITUS
     Dosage: 9MG TWICE PER DAY
     Route: 048
     Dates: start: 20060201, end: 20060801
  2. IBUPROFEN [Concomitant]
  3. MULTI-VITAMINS [Concomitant]

REACTIONS (1)
  - COMA [None]
